FAERS Safety Report 14835352 (Version 2)
Quarter: 2018Q3

REPORT INFORMATION
  Report Type: Spontaneous
  Country: US (occurrence: US)
  Receive Date: 20180502
  Receipt Date: 20180903
  Transmission Date: 20181010
  Serious: Yes (Other)
  Sender: FDA-Public Use
  Company Number: US-ROCHE-2114751

PATIENT
  Sex: Female

DRUGS (1)
  1. XOLAIR [Suspect]
     Active Substance: OMALIZUMAB
     Indication: IDIOPATHIC URTICARIA
     Route: 058
     Dates: start: 20180219

REACTIONS (6)
  - Arthralgia [Unknown]
  - Myalgia [Unknown]
  - Deafness [Unknown]
  - Hot flush [Unknown]
  - Pain [Unknown]
  - Fatigue [Unknown]
